FAERS Safety Report 21079625 (Version 1)
Quarter: 2022Q3

REPORT INFORMATION
  Report Type: Spontaneous
  Country: US (occurrence: US)
  Receive Date: 20220714
  Receipt Date: 20220714
  Transmission Date: 20221027
  Serious: No
  Sender: FDA-Public Use
  Company Number: US-PRINSTON PHARMACEUTICAL INC.-2022PRN00205

PATIENT
  Age: 54 Year
  Sex: Female
  Weight: 76.66 kg

DRUGS (3)
  1. LISINOPRIL [Suspect]
     Active Substance: LISINOPRIL
     Indication: Blood pressure abnormal
     Dosage: 10 MG
     Dates: start: 2014
  2. LISINOPRIL [Suspect]
     Active Substance: LISINOPRIL
     Dosage: 20 MG (DOUBLE DOSE) TWICE (4 TIMES THE REGULAR DOSE)
     Dates: start: 20220602, end: 20220602
  3. PAXLOVID [Suspect]
     Active Substance: NIRMATRELVIR\RITONAVIR
     Indication: COVID-19
     Dosage: 100 MG RITONAVIR, 300 MG NIRMATRELVIR (3 PILLS)
     Dates: start: 20220601

REACTIONS (4)
  - Blood pressure diastolic increased [Not Recovered/Not Resolved]
  - Stress [Unknown]
  - Therapeutic product effect incomplete [Not Recovered/Not Resolved]
  - Extra dose administered [Unknown]

NARRATIVE: CASE EVENT DATE: 20220602
